FAERS Safety Report 7608035-2 (Version None)
Quarter: 2011Q3

REPORT INFORMATION
  Report Type: 
  Country: None (occurrence: None)
  Receive Date: 20110714
  Receipt Date: 20110705
  Transmission Date: 20111222
  Serious: Yes (Death, Life-Threatening, Other)
  Sender: FDA-Public Use
  Company Number: GB-JNJFOC-20110700339

PATIENT
  Age: 26 Year
  Sex: Male

DRUGS (1)
  1. TRAMADOL HCL [Suspect]
     Indication: PRODUCT USED FOR UNKNOWN INDICATION
     Route: 065

REACTIONS (6)
  - COMPLETED SUICIDE [None]
  - OVERDOSE [None]
  - COMA [None]
  - MYDRIASIS [None]
  - DYSPNOEA [None]
  - MEDICATION ERROR [None]
